FAERS Safety Report 10234795 (Version 1)
Quarter: 2014Q2

REPORT INFORMATION
  Report Type: Spontaneous
  Country: DE (occurrence: None)
  Receive Date: 20140610
  Receipt Date: 20140610
  Transmission Date: 20141212
  Serious: Yes (Other)
  Sender: FDA-Public Use
  Company Number: 2014-19351

PATIENT
  Age: 61 Year
  Sex: Female
  Weight: 79 kg

DRUGS (1)
  1. EYLEA [Suspect]
     Indication: AGE-RELATED MACULAR DEGENERATION
     Route: 047
     Dates: start: 20131210, end: 20131210

REACTIONS (4)
  - Blepharitis [None]
  - Keratitis [None]
  - Corneal epithelium defect [None]
  - Eye pain [None]
